FAERS Safety Report 5828021-2 (Version None)
Quarter: 2008Q3

REPORT INFORMATION
  Report Type: 
  Country: None (occurrence: None)
  Receive Date: 20080729
  Receipt Date: 20080717
  Transmission Date: 20090109
  Serious: No
  Sender: FDA-Public Use
  Company Number: 001441

PATIENT
  Age: 85 Year
  Sex: Female

DRUGS (7)
  1. PLETAL [Suspect]
     Indication: ARTERIOSCLEROSIS OBLITERANS
     Dosage: 100 MG, BID; ORAL
     Route: 048
     Dates: start: 20080201, end: 20080322
  2. ASPIRIN [Concomitant]
  3. ARB (ARB) [Concomitant]
  4. DIURETICS [Concomitant]
  5. OLMETEC (OLMESARTAN MEDOXOMIL) TABLET [Concomitant]
  6. NATRIX (INDAPAMIDE) TABLET [Concomitant]
  7. LASIX [Concomitant]

REACTIONS (3)
  - DIALYSIS [None]
  - HYPOPROTEINAEMIA [None]
  - RENAL FAILURE ACUTE [None]
